FAERS Safety Report 12047098 (Version 2)
Quarter: 2016Q1

REPORT INFORMATION
  Report Type: Spontaneous
  Country: DE (occurrence: DE)
  Receive Date: 20160209
  Receipt Date: 20160310
  Transmission Date: 20160526
  Serious: Yes (Death, Life-Threatening, Other)
  Sender: FDA-Public Use
  Company Number: DE-ROCHE-1707999

PATIENT
  Age: 68 Year
  Sex: Female
  Weight: 67 kg

DRUGS (4)
  1. BELOC-ZOK [Concomitant]
     Active Substance: METOPROLOL SUCCINATE
     Route: 048
  2. ACTILYSE [Suspect]
     Active Substance: ALTEPLASE
     Indication: ISCHAEMIC STROKE
     Route: 042
     Dates: start: 20151127
  3. VALSARTAN. [Concomitant]
     Active Substance: VALSARTAN
     Route: 048
  4. SIMVA [Concomitant]
     Route: 048

REACTIONS (2)
  - Basal ganglia haemorrhage [Unknown]
  - Gastrointestinal haemorrhage [Fatal]

NARRATIVE: CASE EVENT DATE: 20151127
